FAERS Safety Report 6247580-1 (Version None)
Quarter: 2009Q2

REPORT INFORMATION
  Report Type: 
  Country: None (occurrence: None)
  Receive Date: 20090626
  Receipt Date: 20090223
  Transmission Date: 20091009
  Serious: Yes (Hospitalization)
  Sender: FDA-Public Use
  Company Number: US-MERCK-0812USA04648

PATIENT
  Age: 84 Year
  Sex: Male
  Weight: 87 kg

DRUGS (3)
  1. JANUVIA [Suspect]
     Route: 048
     Dates: start: 20081105, end: 20081107
  2. ACTOS [Concomitant]
     Route: 065
     Dates: end: 20081101
  3. GLYBURIDE [Concomitant]
     Route: 065

REACTIONS (6)
  - CELLULITIS [None]
  - DRUG EFFECT INCREASED [None]
  - HYPOGLYCAEMIA [None]
  - LIMB DISCOMFORT [None]
  - PAIN [None]
  - PULSE ABSENT [None]
